FAERS Safety Report 6655542-5 (Version None)
Quarter: 2010Q1

REPORT INFORMATION
  Report Type: 
  Country: None (occurrence: None)
  Receive Date: 20100317
  Receipt Date: 20100111
  Transmission Date: 20100710
  Serious: No
  Sender: FDA-Public Use
  Company Number: DSA_42314_2010

PATIENT
  Sex: Female

DRUGS (2)
  1. XENAZINE [Suspect]
     Indication: DYSTONIA
     Dosage: 12.5 MG BID ORAL, 12.5 MG TID ORAL
     Route: 048
     Dates: start: 20091224
  2. ZOLOFT [Concomitant]

REACTIONS (2)
  - DRUG INEFFECTIVE FOR UNAPPROVED INDICATION [None]
  - MUSCULOSKELETAL STIFFNESS [None]
